FAERS Safety Report 21779481 (Version 1)
Quarter: 2022Q4

REPORT INFORMATION
  Report Type: Spontaneous
  Country: BR (occurrence: BR)
  Receive Date: 20221226
  Receipt Date: 20221226
  Transmission Date: 20230113
  Serious: Yes (Death, Hospitalization, Other)
  Sender: FDA-Public Use
  Company Number: None

PATIENT
  Age: 42 Year
  Sex: Male
  Weight: 88.6 kg

DRUGS (4)
  1. BLINCYTO [Suspect]
     Active Substance: BLINATUMOMAB
     Indication: B precursor type acute leukaemia
     Dosage: 84 MICROGRAM,2 PER 1 WEEK
     Route: 065
     Dates: start: 20220521
  2. BLINCYTO [Suspect]
     Active Substance: BLINATUMOMAB
     Dosage: 84 MICROGRAM,2 PER 1 WEEK
     Route: 065
     Dates: end: 20220920
  3. DEXAMETHASONE [Concomitant]
     Active Substance: DEXAMETHASONE
     Dosage: 24 MILLIGRAM
  4. DASATINIB [Concomitant]
     Active Substance: DASATINIB

REACTIONS (5)
  - Death [Fatal]
  - Tremor [Recovered/Resolved]
  - Speech disorder [Recovered/Resolved]
  - Somnolence [Recovered/Resolved]
  - Pyrexia [Unknown]

NARRATIVE: CASE EVENT DATE: 20220101
